FAERS Safety Report 6377776-X (Version None)
Quarter: 2009Q3

REPORT INFORMATION
  Report Type: 
  Country: None (occurrence: None)
  Receive Date: 20090925
  Receipt Date: 20090915
  Transmission Date: 20100115
  Serious: Yes (Disabling)
  Sender: FDA-Public Use
  Company Number: US-ELI_LILLY_AND_COMPANY-US200909003473

PATIENT
  Sex: Female

DRUGS (4)
  1. PROZAC [Suspect]
     Indication: BIPOLAR DISORDER
     Dosage: UNK, UNKNOWN
     Route: 065
     Dates: start: 19930101
  2. PROZAC [Suspect]
     Dosage: 90 MG, 2/W
     Route: 065
  3. FLUOXETINE [Concomitant]
     Dosage: UNK, UNKNOWN
     Route: 065
  4. KEPRA [Concomitant]
     Dosage: UNK, UNKNOWN
     Route: 065

REACTIONS (4)
  - DISABILITY [None]
  - OFF LABEL USE [None]
  - OVERDOSE [None]
  - TOOTH DISORDER [None]
